FAERS Safety Report 23642306 (Version 2)
Quarter: 2024Q3

REPORT INFORMATION
  Report Type: Report from Study
  Country: US (occurrence: US)
  Receive Date: 20240318
  Receipt Date: 20240905
  Transmission Date: 20241017
  Serious: Yes (Disabling)
  Sender: AMGEN
  Company Number: US-HORIZON THERAPEUTICS-HZN-2021-006886

PATIENT
  Age: 83 Year
  Sex: Female

DRUGS (18)
  1. TEPEZZA [Suspect]
     Active Substance: TEPROTUMUMAB-TRBW
     Indication: Endocrine ophthalmopathy
     Dosage: 550 MILLIGRAM, Q3WK, (FIRST INFUSION)
     Route: 042
     Dates: start: 20210821
  2. TEPEZZA [Suspect]
     Active Substance: TEPROTUMUMAB-TRBW
     Dosage: 1100 MILLIGRAM, Q3WK, (SECOND INFUSION)
     Route: 042
     Dates: start: 20210909
  3. TEPEZZA [Suspect]
     Active Substance: TEPROTUMUMAB-TRBW
     Dosage: 1100 MILLIGRAM, Q3WK, (THIRD INFUSION)
     Route: 042
     Dates: start: 20210930
  4. TEPEZZA [Suspect]
     Active Substance: TEPROTUMUMAB-TRBW
     Dosage: 1100 MILLIGRAM, Q3WK, (FOURTH INFUSION)
     Route: 042
     Dates: start: 20211023
  5. TEPEZZA [Suspect]
     Active Substance: TEPROTUMUMAB-TRBW
     Dosage: 1100 MILLIGRAM, Q3WK, (FIFTH INFUSION)
     Route: 042
     Dates: start: 20211113
  6. TEPEZZA [Suspect]
     Active Substance: TEPROTUMUMAB-TRBW
     Dosage: 1100 MILLIGRAM, Q3WK, (SIXTH INFUSION)
     Route: 042
     Dates: start: 20211207
  7. TEPEZZA [Suspect]
     Active Substance: TEPROTUMUMAB-TRBW
     Dosage: 1100 MILLIGRAM, Q3WK, (SEVENTH INFUSION)
     Route: 042
     Dates: start: 20211228
  8. TEPEZZA [Suspect]
     Active Substance: TEPROTUMUMAB-TRBW
     Dosage: 1100 MILLIGRAM, (EIGHT INFUSION)
     Route: 042
     Dates: start: 20220120
  9. PROLIA [Suspect]
     Active Substance: DENOSUMAB
     Indication: Product used for unknown indication
     Dosage: UNK
     Route: 065
  10. LEVOTHYROXINE [Concomitant]
     Active Substance: LEVOTHYROXINE\LEVOTHYROXINE SODIUM
     Dosage: 25 MICROGRAM, QD
     Route: 048
  11. TRIAMTERENE [Concomitant]
     Active Substance: TRIAMTERENE
     Dosage: 37.5 MILLIGRAM, QD
     Route: 048
  12. ASPIRIN [Concomitant]
     Active Substance: ASPIRIN
     Dosage: 81 MILLIGRAM
     Route: 048
  13. CHLOROTHIAZIDE [Concomitant]
     Active Substance: CHLOROTHIAZIDE
     Dosage: 25 MILLIGRAM, QD
     Route: 048
  14. MAXZIDE [Concomitant]
     Active Substance: HYDROCHLOROTHIAZIDE\TRIAMTERENE
     Dosage: UNK
     Route: 065
  15. SODIUM CHLORIDE [Concomitant]
     Active Substance: SODIUM CHLORIDE
     Dosage: 100 MILLIGRAM
     Route: 065
  16. SODIUM CHLORIDE [Concomitant]
     Active Substance: SODIUM CHLORIDE
     Dosage: 10 MILLIGRAM
     Route: 065
  17. EPINEPHRINE [Concomitant]
     Active Substance: EPINEPHRINE
     Dosage: 100 MILLIGRAM
     Route: 065
  18. ASPIRIN [Concomitant]
     Active Substance: ASPIRIN
     Dosage: 81 MILLIGRAM, QD
     Route: 048

REACTIONS (14)
  - Deafness neurosensory [Not Recovered/Not Resolved]
  - Blood pressure increased [Unknown]
  - Headache [Recovering/Resolving]
  - Dizziness [Recovered/Resolved]
  - Nausea [Recovering/Resolving]
  - Pain [Not Recovered/Not Resolved]
  - Injury [Not Recovered/Not Resolved]
  - Anxiety [Not Recovered/Not Resolved]
  - Discomfort [Not Recovered/Not Resolved]
  - Emotional distress [Not Recovered/Not Resolved]
  - Concomitant disease aggravated [Not Recovered/Not Resolved]
  - Blood glucose abnormal [Unknown]
  - Product quality issue [Unknown]
  - Tinnitus [Not Recovered/Not Resolved]

NARRATIVE: CASE EVENT DATE: 20210909
